FAERS Safety Report 15991562 (Version 1)
Quarter: 2019Q1

REPORT INFORMATION
  Report Type: Spontaneous
  Country: DK (occurrence: DK)
  Receive Date: 20190221
  Receipt Date: 20190221
  Transmission Date: 20190418
  Serious: Yes (Other)
  Sender: FDA-Public Use
  Company Number: DK-PFIZER INC-2019074530

PATIENT
  Age: 45 Year
  Sex: Female

DRUGS (10)
  1. DOCETAXEL. [Suspect]
     Active Substance: DOCETAXEL
     Indication: BREAST CANCER STAGE II
     Dosage: 160 MG, UNK
     Dates: start: 20140416, end: 20140416
  2. TAMOXIFEN [Suspect]
     Active Substance: TAMOXIFEN
     Indication: BREAST CANCER STAGE II
     Dosage: UNK
     Dates: start: 20140618, end: 20180208
  3. EPIRUBICIN HCL [Suspect]
     Active Substance: EPIRUBICIN HYDROCHLORIDE
     Indication: BREAST CANCER STAGE II
     Dosage: 190 MG, UNK
     Dates: start: 20140205, end: 20140205
  4. EPIRUBICIN HCL [Suspect]
     Active Substance: EPIRUBICIN HYDROCHLORIDE
     Dosage: UNK
     Dates: start: 20140228, end: 20140228
  5. EPIRUBICIN HCL [Suspect]
     Active Substance: EPIRUBICIN HYDROCHLORIDE
     Dosage: 130 MG, UNK
     Dates: start: 20140325, end: 20140325
  6. CYCLOPHOSPHAMIDE. [Suspect]
     Active Substance: CYCLOPHOSPHAMIDE
     Indication: BREAST CANCER STAGE II
     Dosage: 1250 MG, UNK
     Dates: start: 20140205, end: 20140205
  7. DOCETAXEL. [Suspect]
     Active Substance: DOCETAXEL
     Dosage: 160 MG, UNK
     Dates: start: 20140507, end: 20140507
  8. DOCETAXEL. [Suspect]
     Active Substance: DOCETAXEL
     Dosage: 160 MG, UNK
     Dates: start: 20140528, end: 20140528
  9. CYCLOPHOSPHAMIDE. [Suspect]
     Active Substance: CYCLOPHOSPHAMIDE
     Dosage: UNK
     Dates: start: 20140228, end: 20140228
  10. CYCLOPHOSPHAMIDE. [Suspect]
     Active Substance: CYCLOPHOSPHAMIDE
     Dosage: 1100 MG, UNK
     Dates: start: 20140325, end: 20140325

REACTIONS (24)
  - Pain [Not Recovered/Not Resolved]
  - Toothache [Unknown]
  - Tooth demineralisation [Not Recovered/Not Resolved]
  - Dry mouth [Unknown]
  - Eye pain [Unknown]
  - Osteoporosis [Not Recovered/Not Resolved]
  - Fatigue [Not Recovered/Not Resolved]
  - Lymphoedema [Not Recovered/Not Resolved]
  - Sensory disturbance [Not Recovered/Not Resolved]
  - Spinal osteoarthritis [Unknown]
  - Pain in extremity [Unknown]
  - Tooth extraction [Recovered/Resolved]
  - Vulvovaginal mycotic infection [Unknown]
  - Diabetes mellitus [Not Recovered/Not Resolved]
  - Tooth infection [Unknown]
  - Muscle spasms [Not Recovered/Not Resolved]
  - Oral candidiasis [Unknown]
  - Nipple pain [Unknown]
  - Peripheral swelling [Not Recovered/Not Resolved]
  - Headache [Unknown]
  - Arthralgia [Unknown]
  - Myalgia [Unknown]
  - Blood pressure fluctuation [Not Recovered/Not Resolved]
  - Hypertension [Unknown]

NARRATIVE: CASE EVENT DATE: 2014
